FAERS Safety Report 9037887 (Version 2)
Quarter: 2013Q2

REPORT INFORMATION
  Report Type: Report from Study
  Country: JP (occurrence: JP)
  Receive Date: 20130129
  Receipt Date: 20130605
  Transmission Date: 20140414
  Serious: Yes (Life-Threatening)
  Sender: FDA-Public Use
  Company Number: JP-009507513-1301JPN012955

PATIENT
  Age: 64 Year
  Sex: Female
  Weight: 48 kg

DRUGS (6)
  1. PEGINTRON [Suspect]
     Indication: CHRONIC HEPATITIS C
     Dosage: 1.5 MICROGRAM PER KILOGRAM, QW
     Route: 058
     Dates: start: 20120723, end: 20121015
  2. REBETOL [Suspect]
     Indication: CHRONIC HEPATITIS C
     Dosage: 400 MG, QD
     Route: 048
     Dates: start: 20120723, end: 20121018
  3. TELAVIC [Suspect]
     Indication: CHRONIC HEPATITIS C
     Dosage: 1500 MG, QD
     Route: 048
     Dates: start: 20120723, end: 20121015
  4. CABASER [Concomitant]
     Indication: PITUITARY TUMOUR BENIGN
     Dosage: DAILY DOSE UNKNOWN, 0.25 MG/ WEEK, FORMULATION: POR
     Route: 048
  5. CABASER [Concomitant]
     Dosage: 0.25 MG, QD, FORMULATION: POR
     Route: 048
     Dates: end: 20121018
  6. LONGES [Concomitant]
     Indication: HYPERTENSION
     Dosage: 10 MG, QD, FORMULATION: POR
     Route: 048
     Dates: end: 20121018

REACTIONS (2)
  - Cellulitis [Recovered/Resolved with Sequelae]
  - Septic shock [Recovered/Resolved with Sequelae]
